FAERS Safety Report 4846924-2 (Version None)
Quarter: 2005Q4

REPORT INFORMATION
  Report Type: 
  Country: None (occurrence: None)
  Receive Date: 20051202
  Receipt Date: 20051122
  Transmission Date: 20060501
  Serious: Yes (Other)
  Sender: FDA-Public Use
  Company Number: 2005160548

PATIENT
  Sex: Male

DRUGS (1)
  1. AZULFIDINE [Suspect]
     Indication: CROHN'S DISEASE
     Dates: end: 20050101

REACTIONS (2)
  - EPILEPSY [None]
  - PHOTOSENSITIVITY REACTION [None]
